FAERS Safety Report 11547383 (Version 1)
Quarter: 2015Q3

REPORT INFORMATION
  Report Type: Spontaneous
  Country: US (occurrence: US)
  Receive Date: 20150903
  Receipt Date: 20150903
  Transmission Date: 20151125
  Serious: No
  Sender: FDA-Public Use
  Company Number: US-ELI_LILLY_AND_COMPANY-US201101007244

PATIENT
  Age: 64 Year
  Sex: Male

DRUGS (5)
  1. HUMALOG [Suspect]
     Active Substance: INSULIN LISPRO
     Dosage: 35 U, 2/D
     Dates: start: 200511
  2. HUMALOG [Suspect]
     Active Substance: INSULIN LISPRO
     Indication: TYPE 2 DIABETES MELLITUS
     Dosage: 35 U, 2/D
  3. SYMLIN [Concomitant]
     Active Substance: PRAMLINTIDE ACETATE
  4. LANTUS [Concomitant]
     Active Substance: INSULIN GLARGINE
  5. HUMALOG [Suspect]
     Active Substance: INSULIN LISPRO
     Indication: TYPE 2 DIABETES MELLITUS
     Dosage: 35 U, 2/D
     Dates: start: 200511

REACTIONS (6)
  - Fracture [Unknown]
  - Drug dose omission [Unknown]
  - Blood glucose increased [Unknown]
  - Surgery [Unknown]
  - Accident [Unknown]
  - Muscular weakness [Unknown]

NARRATIVE: CASE EVENT DATE: 201101
